FAERS Safety Report 9038490 (Version 1)
Quarter: 2013Q1

REPORT INFORMATION
  Report Type: Spontaneous
  Country: GR (occurrence: GR)
  Receive Date: 20130129
  Receipt Date: 20130129
  Transmission Date: 20140127
  Serious: Yes (Disabling)
  Sender: FDA-Public Use
  Company Number: GR-ABBOTT-13P-066-1040623-00

PATIENT
  Age: 45 Year
  Sex: Female

DRUGS (1)
  1. KLARICID [Suspect]
     Indication: PNEUMONIA

REACTIONS (5)
  - Fear [Unknown]
  - Nightmare [Unknown]
  - Panic reaction [Unknown]
  - Confusional state [Unknown]
  - Hallucination [Unknown]
